FAERS Safety Report 17544744 (Version 1)
Quarter: 2020Q1

REPORT INFORMATION
  Report Type: Spontaneous
  Country: US (occurrence: US)
  Receive Date: 20200316
  Receipt Date: 20200316
  Transmission Date: 20200409
  Serious: Yes (Other)
  Sender: FDA-Public Use
  Company Number: US-PFIZER INC-2020109333

PATIENT
  Sex: Female

DRUGS (4)
  1. PREGABALIN. [Suspect]
     Active Substance: PREGABALIN
     Indication: INTERVERTEBRAL DISC PROTRUSION
     Dosage: 100 MG, UNK
     Dates: start: 201910
  2. GABAPENTIN. [Suspect]
     Active Substance: GABAPENTIN
     Dosage: UNK, (WEANING DOWN TO HALF A DOSE)
  3. PREGABALIN. [Suspect]
     Active Substance: PREGABALIN
     Dosage: UNK, (WEANING DOWN TO HALF A DOSE)
  4. GABAPENTIN. [Suspect]
     Active Substance: GABAPENTIN
     Indication: INTERVERTEBRAL DISC PROTRUSION
     Dosage: 150 MG, UNK
     Dates: start: 201910

REACTIONS (4)
  - Blood pressure increased [Unknown]
  - Addison^s disease [Unknown]
  - Blood cholesterol increased [Recovered/Resolved]
  - Thyroid disorder [Unknown]

NARRATIVE: CASE EVENT DATE: 2019
